FAERS Safety Report 6220328-2 (Version None)
Quarter: 2009Q2

REPORT INFORMATION
  Report Type: 
  Country: None (occurrence: None)
  Receive Date: 20090610
  Receipt Date: 20070502
  Transmission Date: 20091009
  Serious: Yes (Other)
  Sender: FDA-Public Use
  Company Number: US-ASTRAZENECA-2006UW26162

PATIENT
  Age: 33 Year
  Sex: Male
  Weight: 96.2 kg

DRUGS (13)
  1. SEROQUEL [Suspect]
     Indication: SCHIZOPHRENIA
     Dosage: 100 MG-300 MG IN TITRATING DOSE
     Route: 048
     Dates: start: 20040121
  2. SEROQUEL [Suspect]
     Route: 048
     Dates: start: 20040204
  3. SEROQUEL [Suspect]
     Dosage: 200 MG I TABLET AT MORNING AND 3 TABLETS AT NIGHT
     Route: 048
     Dates: start: 20050916
  4. SEROQUEL [Suspect]
     Route: 048
  5. ABILIFY [Concomitant]
  6. RISPERDAL [Concomitant]
  7. ZOLOFT [Concomitant]
  8. GLUCOVANCE [Concomitant]
     Dates: start: 20041217
  9. LIPITOR [Concomitant]
     Dates: start: 20041217
  10. ACCURETIC [Concomitant]
     Dates: start: 20041217
  11. MAXZIDE [Concomitant]
     Dates: start: 20040106
  12. AVANDIA [Concomitant]
     Dates: start: 20040106
  13. MAVIK [Concomitant]
     Dates: start: 20040106

REACTIONS (14)
  - BLOOD PRESSURE INCREASED [None]
  - DIABETES MELLITUS [None]
  - DIABETES MELLITUS INADEQUATE CONTROL [None]
  - DIABETIC KETOACIDOSIS [None]
  - DIABETIC NEUROPATHY [None]
  - DIABETIC ULCER [None]
  - ERECTILE DYSFUNCTION [None]
  - EXTRAPYRAMIDAL DISORDER [None]
  - INSULIN-REQUIRING TYPE 2 DIABETES MELLITUS [None]
  - NEUROLEPTIC MALIGNANT SYNDROME [None]
  - NEUROPATHY PERIPHERAL [None]
  - PANCREATITIS [None]
  - POLYURIA [None]
  - TYPE 2 DIABETES MELLITUS [None]
